FAERS Safety Report 4299079-X (Version None)
Quarter: 2004Q1

REPORT INFORMATION
  Report Type: 
  Country: None (occurrence: None)
  Receive Date: 20040218
  Receipt Date: 20040206
  Transmission Date: 20041129
  Serious: Yes (Other)
  Sender: FDA-Public Use
  Company Number: 04C049

PATIENT
  Age: 80 Year
  Sex: Female
  Weight: 70.7611 kg

DRUGS (2)
  1. BACITRACIN ZINC [Suspect]
     Indication: SURGERY
     Dosage: 3 X DAILY
     Dates: start: 20040123, end: 20040130
  2. CLEOCIN ANTIBIOTIC [Concomitant]

REACTIONS (2)
  - EYE SWELLING [None]
  - RASH ERYTHEMATOUS [None]
